FAERS Safety Report 22219210 (Version 1)
Quarter: 2023Q2

REPORT INFORMATION
  Report Type: Spontaneous
  Country: NL (occurrence: GB)
  Receive Date: 20230417
  Receipt Date: 20230417
  Transmission Date: 20230721
  Serious: Yes (Other)
  Sender: FDA-Public Use
  Company Number: NL-SMITH AND NEPHEW, INC-2023SMT00027

PATIENT
  Sex: Male

DRUGS (1)
  1. COLLAGENASE CLOSTRIDIUM HISTOLYTICUM [Suspect]
     Active Substance: COLLAGENASE CLOSTRIDIUM HISTOLYTICUM
     Indication: Peyronie^s disease

REACTIONS (1)
  - Fracture of penis [Unknown]
